FAERS Safety Report 24962708 (Version 1)
Quarter: 2025Q1

REPORT INFORMATION
  Report Type: Spontaneous
  Country: US (occurrence: US)
  Receive Date: 20250212
  Receipt Date: 20250212
  Transmission Date: 20250409
  Serious: No
  Sender: AMGEN
  Company Number: US-AMGEN-USASP2025026534

PATIENT
  Age: 64 Year
  Sex: Female

DRUGS (17)
  1. AIMOVIG [Suspect]
     Active Substance: ERENUMAB-AOOE
     Indication: Headache
     Dosage: 140 MILLIGRAM, QMO
     Route: 058
     Dates: start: 202408
  2. AIMOVIG [Suspect]
     Active Substance: ERENUMAB-AOOE
     Dosage: 140 MILLIGRAM, QMO
     Route: 058
  3. LEVOTHYROXINE [Concomitant]
     Active Substance: LEVOTHYROXINE
     Indication: Thyroid disorder
     Dosage: 0.112 MILLIGRAM, QD
     Route: 058
     Dates: start: 1993
  4. GABAPENTIN [Concomitant]
     Active Substance: GABAPENTIN
     Indication: Neuralgia
     Dosage: 600 MILLIGRAM, QID
  5. TRAMADOL [Concomitant]
     Active Substance: TRAMADOL
     Indication: Sjogren^s syndrome
  6. RESTASIS [Concomitant]
     Active Substance: CYCLOSPORINE
     Indication: Sjogren^s syndrome
     Dosage: UNK UNK (ONE DROP INTO BOTH EYES), QD
     Route: 047
  7. DULOXETINE [Concomitant]
     Active Substance: DULOXETINE
     Indication: Sjogren^s syndrome
     Dosage: 60 MILLIGRAM, QD
  8. PROPRANOLOL [Concomitant]
     Active Substance: PROPRANOLOL HYDROCHLORIDE
     Indication: Headache
     Dosage: 80 MILLIGRAM, QD
  9. AMLODIPINE [Concomitant]
     Active Substance: AMLODIPINE BESYLATE
     Indication: Cardiovascular disorder
     Dates: start: 2010
  10. AMLODIPINE [Concomitant]
     Active Substance: AMLODIPINE BESYLATE
     Indication: Raynaud^s phenomenon
  11. BOTOX [Concomitant]
     Active Substance: ONABOTULINUMTOXINA
     Indication: Headache
     Dosage: UNK UNK (NUMEROUS SHOTS), Q3MO
     Dates: start: 2024
  12. CELLCEPT [Concomitant]
     Active Substance: MYCOPHENOLATE MOFETIL
     Indication: Sjogren^s syndrome
     Dosage: 500 MILLIGRAM, BID
     Dates: start: 2010
  13. OMEPRAZOLE [Concomitant]
     Active Substance: OMEPRAZOLE
     Indication: Gastrointestinal disorder
     Dosage: 40 MILLIGRAM, QD
  14. FOLIC ACID [Concomitant]
     Active Substance: FOLIC ACID
     Indication: Raynaud^s phenomenon
     Dates: start: 2010
  15. HYDROXYCHLOROQUINE [Concomitant]
     Active Substance: HYDROXYCHLOROQUINE
     Indication: Sjogren^s syndrome
     Dosage: 200 MILLIGRAM, BID
     Dates: start: 2021
  16. PILOCARPINE [Concomitant]
     Active Substance: PILOCARPINE
     Indication: Sjogren^s syndrome
     Dosage: 5 MILLIGRAM, TID
     Dates: start: 202104
  17. TYRVAYA [Concomitant]
     Active Substance: VARENICLINE TARTRATE
     Indication: Dry eye
     Dosage: UNK UNK (0.03  (UNITS UNKNOWN) 2 SPRAYS IN EACH NOSTRIL, BID
     Route: 045
     Dates: start: 20240523

REACTIONS (5)
  - Therapeutic response shortened [Unknown]
  - Headache [Unknown]
  - Device difficult to use [Unknown]
  - Drug dose omission by device [Unknown]
  - Wrong technique in product usage process [Unknown]

NARRATIVE: CASE EVENT DATE: 20250205
